FAERS Safety Report 23304445 (Version 1)
Quarter: 2023Q4

REPORT INFORMATION
  Report Type: Spontaneous
  Country: GB (occurrence: None)
  Receive Date: 20231218
  Receipt Date: 20231218
  Transmission Date: 20240110
  Serious: Yes (Hospitalization)
  Sender: FDA-Public Use
  Company Number: GB-ROCHE-2762476

PATIENT
  Sex: Male

DRUGS (2)
  1. TOCILIZUMAB [Suspect]
     Active Substance: TOCILIZUMAB
     Indication: Rheumatoid arthritis
     Route: 058
     Dates: start: 2018
  2. TOCILIZUMAB [Suspect]
     Active Substance: TOCILIZUMAB
     Route: 058

REACTIONS (2)
  - Inappropriate schedule of product administration [Unknown]
  - Malaise [Unknown]
